FAERS Safety Report 15815543 (Version 1)
Quarter: 2019Q1

REPORT INFORMATION
  Report Type: Spontaneous
  Country: IT (occurrence: IT)
  Receive Date: 20190112
  Receipt Date: 20190112
  Transmission Date: 20190417
  Serious: Yes (Hospitalization)
  Sender: FDA-Public Use
  Company Number: PHHY2019IT005168

PATIENT
  Age: 86 Year
  Sex: Female

DRUGS (4)
  1. EN [Suspect]
     Active Substance: DELORAZEPAM
     Dosage: 25 GTT, QD
     Route: 048
     Dates: start: 20180724
  2. OLANZAPINE. [Suspect]
     Active Substance: OLANZAPINE
     Dosage: 10 MG, QD
     Route: 048
     Dates: start: 20180724
  3. OLANZAPINE. [Suspect]
     Active Substance: OLANZAPINE
     Indication: CONDUCT DISORDER
     Dosage: 10 MG, QD
     Route: 048
     Dates: start: 20180101
  4. EN [Suspect]
     Active Substance: DELORAZEPAM
     Indication: CONDUCT DISORDER
     Dosage: 25 GTT, QD
     Route: 048
     Dates: start: 20180101

REACTIONS (2)
  - Sopor [Unknown]
  - Overdose [Unknown]

NARRATIVE: CASE EVENT DATE: 20180724
